FAERS Safety Report 10955445 (Version 1)
Quarter: 2015Q1

REPORT INFORMATION
  Report Type: Spontaneous
  Country: US (occurrence: US)
  Receive Date: 20150326
  Receipt Date: 20150326
  Transmission Date: 20150721
  Serious: Yes (Hospitalization)
  Sender: FDA-Public Use
  Company Number: US-AMGEN-USASP2015027553

PATIENT
  Age: 9 Year
  Sex: Female

DRUGS (1)
  1. ENBREL [Suspect]
     Active Substance: ETANERCEPT
     Indication: EWING^S SARCOMA
     Dosage: 25 MG, QWK
     Route: 065
     Dates: start: 20150203, end: 20150303

REACTIONS (1)
  - Pain [Unknown]

NARRATIVE: CASE EVENT DATE: 20150304
